FAERS Safety Report 8920575 (Version 2)
Quarter: 2012Q4

REPORT INFORMATION
  Report Type: Report from Study
  Country: DE (occurrence: DE)
  Receive Date: 20121121
  Receipt Date: 20121228
  Transmission Date: 20130627
  Serious: Yes (Hospitalization)
  Sender: FDA-Public Use
  Company Number: DE-ROCHE-1153502

PATIENT
  Age: 57 Year
  Sex: Male
  Weight: 85 kg

DRUGS (12)
  1. BEVACIZUMAB [Suspect]
     Indication: BRAIN NEOPLASM MALIGNANT
     Dosage: Date of last dose prior to SAE: 26/Oct/2012
     Route: 042
  2. IRINOTECAN [Suspect]
     Indication: BRAIN NEOPLASM MALIGNANT
     Dosage: Date of last dose prior to SAE: 26/Oct/2012
     Route: 042
  3. TEMOZOLOMIDE [Suspect]
     Indication: BRAIN NEOPLASM MALIGNANT
     Route: 048
     Dates: start: 20111206
  4. PASPERTIN [Concomitant]
     Route: 065
     Dates: start: 201112, end: 201112
  5. ZOFRAN [Concomitant]
     Route: 065
     Dates: start: 201112
  6. DEXA POLYSPECTRAN (GERMANY) [Concomitant]
     Route: 065
     Dates: start: 20120116
  7. TRICHLOROACETIC ACID [Concomitant]
     Route: 065
     Dates: start: 20120120, end: 20120120
  8. CONCOR [Concomitant]
     Route: 065
  9. ENALAPRIL [Concomitant]
     Route: 065
  10. FILGRASTIM [Concomitant]
     Route: 065
     Dates: start: 20120206
  11. PENTACARINAT [Concomitant]
     Route: 065
     Dates: start: 20111212, end: 20111212
  12. BERODUAL [Concomitant]
     Route: 065
     Dates: start: 20111212, end: 20111212

REACTIONS (2)
  - Epilepsy [Recovered/Resolved]
  - Spinal fracture [Unknown]
